FAERS Safety Report 8181986-9 (Version None)
Quarter: 2012Q1

REPORT INFORMATION
  Report Type: 
  Country: None (occurrence: None)
  Receive Date: 20120302
  Receipt Date: 20120224
  Transmission Date: 20120608
  Serious: Yes (Other)
  Sender: FDA-Public Use
  Company Number: US-ASTRAZENECA-2012SE07195

PATIENT
  Age: 24534 Day
  Sex: Female
  Weight: 101.2 kg

DRUGS (23)
  1. ASPIRIN [Concomitant]
  2. GLIMEPIRIDE [Concomitant]
  3. POTASSIUM CHLORIDE [Concomitant]
  4. METOPROLOL TARTRATE [Concomitant]
  5. LEVOTHYROXINE SODIUM [Concomitant]
  6. METFORMIN HCL [Concomitant]
  7. NITROGLYCERIN [Concomitant]
     Dosage: 0.4 MG/HR 24 HOUR, 1 PATCH EVERY DAY - REMOVE AT BEDTIME
     Route: 062
  8. METOPROLOL TARTRATE [Concomitant]
     Dates: start: 20120117
  9. HYDROXYCHLOROQUINE SULFATE [Concomitant]
  10. BRIMONIDINE TARTRATE [Concomitant]
  11. HUMALOG [Concomitant]
     Dosage: 100 UNIT/ML, 5 UNITS  AT DINNER
  12. LASIX [Concomitant]
     Route: 048
  13. EFFIENT [Concomitant]
  14. LOVASTATIN [Concomitant]
  15. METOPROLOL TARTRATE [Concomitant]
  16. RANITIDINE AND DIET MANAGE PROD [Concomitant]
  17. TRAMADOL HCL [Concomitant]
  18. LANTUS [Concomitant]
     Dosage: 100 UNIT/ML, 20 UNITS IN EVENING
  19. BRILINTA [Suspect]
     Route: 048
  20. VITAMIN D [Concomitant]
  21. NITROSTAT [Concomitant]
     Indication: CHEST PAIN
  22. AMLODIPINE BESYLATE [Concomitant]
     Indication: BLOOD PRESSURE MANAGEMENT
     Route: 048
  23. LOSARTAN POTASSIUM [Concomitant]
     Route: 048

REACTIONS (3)
  - BRADYCARDIA [None]
  - ATRIOVENTRICULAR BLOCK [None]
  - ARRHYTHMIA [None]
